FAERS Safety Report 7285122-2 (Version None)
Quarter: 2011Q1

REPORT INFORMATION
  Report Type: 
  Country: None (occurrence: None)
  Receive Date: 20110210
  Receipt Date: 20110131
  Transmission Date: 20110831
  Serious: Yes (Hospitalization)
  Sender: FDA-Public Use
  Company Number: PHHY2011FR08605

PATIENT
  Sex: Male

DRUGS (1)
  1. TEGRETOL [Suspect]
     Dosage: 500 MG, QD
     Route: 048

REACTIONS (5)
  - SOMNOLENCE [None]
  - AGITATION [None]
  - AMNESIA [None]
  - DRUG LEVEL INCREASED [None]
  - DEHYDRATION [None]
